FAERS Safety Report 8966911 (Version 3)
Quarter: 2013Q1

REPORT INFORMATION
  Report Type: Report from Study
  Country: DE (occurrence: DE)
  Receive Date: 20121214
  Receipt Date: 20130205
  Transmission Date: 20140127
  Serious: Yes (Hospitalization)
  Sender: FDA-Public Use
  Company Number: DE-ABBOTT-12P-062-1019771-00

PATIENT
  Age: 71 Year
  Sex: Male

DRUGS (4)
  1. HUMIRA [Suspect]
     Indication: RHEUMATOID ARTHRITIS
     Route: 058
     Dates: start: 201007, end: 201202
  2. HUMIRA [Suspect]
     Route: 058
     Dates: start: 201208
  3. METHOTREXATE [Suspect]
     Indication: PRODUCT USED FOR UNKNOWN INDICATION
     Route: 048
     Dates: start: 201008
  4. PREDNISOLONE [Concomitant]
     Indication: PRODUCT USED FOR UNKNOWN INDICATION
     Dosage: 5-7.5 MG PER DAY
     Dates: start: 200809

REACTIONS (12)
  - Chills [Unknown]
  - Pneumonia escherichia [Recovered/Resolved]
  - Nausea [Unknown]
  - Vomiting [Unknown]
  - Musculoskeletal pain [Unknown]
  - Hepatic cyst [Unknown]
  - Renal cyst [Unknown]
  - Gastritis [Unknown]
  - General physical health deterioration [Unknown]
  - Nutritional condition abnormal [Unknown]
  - Arthralgia [Unknown]
  - Back pain [Unknown]
